FAERS Safety Report 7589625-2 (Version None)
Quarter: 2011Q3

REPORT INFORMATION
  Report Type: 
  Country: None (occurrence: None)
  Receive Date: 20110705
  Receipt Date: 20110629
  Transmission Date: 20111222
  Serious: Yes (Disabling, Other)
  Sender: FDA-Public Use
  Company Number: GB-PFIZER INC-2011146087

PATIENT
  Age: 42 Year
  Sex: Female

DRUGS (1)
  1. VENLAFAXINE HCL [Suspect]
     Dosage: 375 MG, UNK
     Route: 048
     Dates: start: 20020601, end: 20110617

REACTIONS (3)
  - TOOTH LOSS [None]
  - PERIODONTAL DISEASE [None]
  - DRY MOUTH [None]
